FAERS Safety Report 10137550 (Version 1)
Quarter: 2014Q2

REPORT INFORMATION
  Report Type: Spontaneous
  Country: US (occurrence: US)
  Receive Date: 20140429
  Receipt Date: 20140429
  Transmission Date: 20141212
  Serious: Yes (Hospitalization)
  Sender: FDA-Public Use
  Company Number: US-BAYER-2014-059695

PATIENT
  Age: 17 Year
  Sex: Female

DRUGS (5)
  1. YASMIN [Suspect]
     Indication: HIRSUTISM
  2. YASMIN [Suspect]
     Indication: MENSTRUAL CYCLE MANAGEMENT
  3. OCELLA [Suspect]
  4. ZOLOFT [Concomitant]
     Dosage: 50 MG, UNK
     Route: 048
  5. ACIPHEX [Concomitant]
     Dosage: 20 MG, UNK
     Route: 048
     Dates: start: 20050912, end: 20051213

REACTIONS (2)
  - Cholelithiasis [None]
  - Pulmonary embolism [Recovered/Resolved]
